FAERS Safety Report 14699670 (Version 1)
Quarter: 2018Q1

REPORT INFORMATION
  Report Type: Spontaneous
  Country: US (occurrence: US)
  Receive Date: 20180330
  Receipt Date: 20180330
  Transmission Date: 20180509
  Serious: Yes (Hospitalization, Other)
  Sender: FDA-Public Use
  Company Number: US-GLAXOSMITHKLINE-US2018053250

PATIENT
  Age: 89 Year
  Sex: Male

DRUGS (4)
  1. ANORO ELLIPTA [Suspect]
     Active Substance: UMECLIDINIUM BROMIDE\VILANTEROL TRIFENATATE
     Indication: CHRONIC OBSTRUCTIVE PULMONARY DISEASE
     Dosage: 1 PUFF(S), QD
     Route: 055
     Dates: start: 201801
  2. METOPROLOL. [Concomitant]
     Active Substance: METOPROLOL
  3. ALEVE [Concomitant]
     Active Substance: NAPROXEN SODIUM
  4. OXYGEN. [Concomitant]
     Active Substance: OXYGEN

REACTIONS (7)
  - Cardiac discomfort [Recovering/Resolving]
  - Aortic aneurysm rupture [Recovering/Resolving]
  - Aneurysm repair [Recovering/Resolving]
  - Vascular procedure complication [Unknown]
  - Angina pectoris [Recovering/Resolving]
  - Aneurysm [Recovering/Resolving]
  - Pulmonary resection [Recovering/Resolving]

NARRATIVE: CASE EVENT DATE: 20180226
